FAERS Safety Report 4761670-1 (Version None)
Quarter: 2005Q3

REPORT INFORMATION
  Report Type: 
  Country: None (occurrence: None)
  Receive Date: 20050906
  Receipt Date: 20050316
  Transmission Date: 20060218
  Serious: Yes (Hospitalization)
  Sender: FDA-Public Use
  Company Number: US-MERCK-0503USA03287

PATIENT
  Age: 60 Year
  Sex: Female
  Weight: 70 kg

DRUGS (17)
  1. VIOXX [Suspect]
     Indication: OSTEOARTHRITIS
     Route: 048
     Dates: start: 19990801
  2. VIOXX [Suspect]
     Route: 048
     Dates: start: 19990101, end: 20030908
  3. ATROVENT [Concomitant]
     Route: 055
  4. SINUTAB REGULAR STRENGTH TABLETS [Concomitant]
     Route: 065
  5. VITAMIN SOURCE GLUCOSAMINE CHONDROITIN MSM [Concomitant]
     Indication: INFLAMMATION
     Route: 048
     Dates: start: 19990101, end: 20041201
  6. VICODIN [Concomitant]
     Indication: PAIN
     Route: 048
     Dates: start: 19980101, end: 19990301
  7. PREMARIN [Concomitant]
     Indication: HORMONE REPLACEMENT THERAPY
     Route: 048
     Dates: start: 19941001, end: 20030910
  8. PRILOSEC [Concomitant]
     Route: 048
  9. PROVERA [Concomitant]
     Indication: HORMONE REPLACEMENT THERAPY
     Route: 048
     Dates: start: 19990601, end: 20030910
  10. PULMICORT [Concomitant]
     Route: 055
  11. SYNTHROID [Concomitant]
     Route: 048
     Dates: start: 19700101
  12. VITAMINS (UNSPECIFIED) [Concomitant]
     Route: 065
  13. CELEBREX [Concomitant]
     Indication: PAIN
     Route: 048
     Dates: start: 20000601, end: 20000701
  14. DILAUDID [Concomitant]
     Indication: PAIN
     Route: 048
     Dates: start: 19990201
  15. SINGULAIR [Concomitant]
     Route: 048
  16. VENTOLIN [Concomitant]
     Route: 065
  17. IBUPROFEN [Concomitant]
     Route: 048
     Dates: start: 19990223, end: 20030910

REACTIONS (9)
  - BREAST CANCER IN SITU [None]
  - CARPAL TUNNEL SYNDROME [None]
  - CORONARY ARTERY DISEASE [None]
  - DIVERTICULUM [None]
  - GASTROOESOPHAGEAL REFLUX DISEASE [None]
  - HIATUS HERNIA [None]
  - MAJOR DEPRESSION [None]
  - MYOCARDIAL INFARCTION [None]
  - SINUSITIS [None]
